FAERS Safety Report 17731422 (Version 1)
Quarter: 2020Q2

REPORT INFORMATION
  Report Type: Spontaneous
  Country: US (occurrence: US)
  Receive Date: 20200430
  Receipt Date: 20200430
  Transmission Date: 20200714
  Serious: No
  Sender: FDA-Public Use
  Company Number: US-ELI_LILLY_AND_COMPANY-US202004011793

PATIENT
  Sex: Male

DRUGS (1)
  1. TALTZ [Suspect]
     Active Substance: IXEKIZUMAB
     Indication: PSORIASIS
     Dosage: 80 MG, UNKNOWN
     Route: 058
     Dates: start: 20191114

REACTIONS (6)
  - Fungal infection [Unknown]
  - Psoriasis [Unknown]
  - Diarrhoea [Unknown]
  - Injection site bruising [Unknown]
  - Dyspepsia [Unknown]
  - Injection site pain [Unknown]
